FAERS Safety Report 16351155 (Version 2)
Quarter: 2019Q3

REPORT INFORMATION
  Report Type: Spontaneous
  Country: FR (occurrence: FR)
  Receive Date: 20190524
  Receipt Date: 20190712
  Transmission Date: 20191004
  Serious: Yes (Death)
  Sender: FDA-Public Use
  Company Number: FR-ADIENNEP-2019AD000272

PATIENT
  Age: 27 Year
  Sex: Female
  Weight: 104 kg

DRUGS (21)
  1. PANTOPRAZOLE [Concomitant]
     Active Substance: PANTOPRAZOLE
  2. DIFICLIR [Concomitant]
     Active Substance: FIDAXOMICIN
  3. ULTRAPROCT [Concomitant]
  4. MESNA. [Concomitant]
     Active Substance: MESNA
  5. BUSILVEX [Suspect]
     Active Substance: BUSULFAN
     Indication: STEM CELL TRANSPLANT
     Dosage: 228 MG DAILY
     Route: 042
     Dates: start: 20190316, end: 20190317
  6. CHOLURSO [Concomitant]
     Active Substance: URSODIOL
  7. VORICONAZOLE. [Concomitant]
     Active Substance: VORICONAZOLE
  8. SMECTA [Concomitant]
     Active Substance: MONTMORILLONITE
  9. VFEND [Concomitant]
     Active Substance: VORICONAZOLE
  10. ENDOXAN [Suspect]
     Active Substance: CYCLOPHOSPHAMIDE
     Indication: STEM CELL TRANSPLANT
     Dosage: 5400 MG DAILY
     Route: 042
     Dates: start: 20190324, end: 20190325
  11. PRIMPERAN [Concomitant]
     Active Substance: METOCLOPRAMIDE HYDROCHLORIDE
  12. ZOPICLONE [Concomitant]
     Active Substance: ZOPICLONE
  13. ONDANSETRON [Concomitant]
     Active Substance: ONDANSETRON
  14. VALACICLOVIR [Concomitant]
     Active Substance: VALACYCLOVIR HYDROCHLORIDE
  15. CELLCEPT [Concomitant]
     Active Substance: MYCOPHENOLATE MOFETIL\MYCOPHENOLATE MOFETIL HYDROCHLORIDE
  16. FLAGYL [Concomitant]
     Active Substance: METRONIDAZOLE\METRONIDAZOLE HYDROCHLORIDE
  17. FLUDARABINE PHOSPHATE. [Suspect]
     Active Substance: FLUDARABINE PHOSPHATE
     Indication: STEM CELL TRANSPLANT
     Dosage: 80 MG DAILY
     Route: 042
     Dates: start: 20190316, end: 20190319
  18. TEPADINA [Suspect]
     Active Substance: THIOTEPA
     Indication: STEM CELL TRANSPLANT
     Dosage: IN TOTAL
     Route: 042
     Dates: start: 20190315, end: 20190315
  19. NOMEGESTROL [Concomitant]
     Active Substance: NOMEGESTROL
  20. CICLOSPORIN [Concomitant]
     Active Substance: CYCLOSPORINE
  21. ZARZIO [Concomitant]
     Active Substance: FILGRASTIM

REACTIONS (5)
  - Lung infection [Fatal]
  - Pancytopenia [Fatal]
  - Sinusitis [Fatal]
  - Septic shock [Fatal]
  - Cellulitis [Fatal]

NARRATIVE: CASE EVENT DATE: 20190325
